FAERS Safety Report 8931345 (Version 2)
Quarter: 2013Q1

REPORT INFORMATION
  Report Type: Spontaneous
  Country: DE (occurrence: DE)
  Receive Date: 20121128
  Receipt Date: 20130109
  Transmission Date: 20140127
  Serious: Yes (Disabling)
  Sender: FDA-Public Use
  Company Number: DE-PFIZER INC-2012295680

PATIENT
  Sex: Female

DRUGS (1)
  1. ZOLOFT [Suspect]
     Indication: BURNOUT SYNDROME
     Dosage: 50 MG, 1X/DAY
     Dates: start: 2012

REACTIONS (1)
  - Visual acuity reduced [Unknown]
